FAERS Safety Report 9460180 (Version 1)
Quarter: 2013Q3

REPORT INFORMATION
  Report Type: Spontaneous
  Country: IE (occurrence: IE)
  Receive Date: 20130815
  Receipt Date: 20130815
  Transmission Date: 20140515
  Serious: Yes (Hospitalization)
  Sender: FDA-Public Use
  Company Number: IE-ASTRAZENECA-2013SE62220

PATIENT
  Age: 66 Year
  Sex: Female

DRUGS (16)
  1. VIMOVO [Suspect]
     Indication: PAIN
     Dosage: 40 MG ESOMEPRAZOLE + 1 MG NAPROXEN
     Route: 048
     Dates: start: 20130607, end: 20130713
  2. LANSOPRAZOLE [Suspect]
  3. SALBUTAMOL [Concomitant]
     Indication: RESPIRATORY DISORDER
  4. BETAHISTINE [Concomitant]
     Indication: DIZZINESS
  5. RISPERIDONE [Concomitant]
  6. STEMETIL [Concomitant]
  7. LEVOTHYROXINE [Concomitant]
  8. BENDROFLUMETHIAZIDE [Concomitant]
  9. RAMIPRIL [Concomitant]
  10. ATORVASTATIN [Concomitant]
  11. RASILEZ [Concomitant]
  12. GALFER [Concomitant]
  13. KEMADRIN [Concomitant]
  14. EXFORGE [Concomitant]
     Dosage: 10/160 MG
  15. PROTHIADEN [Concomitant]
  16. ASPIRIN [Concomitant]

REACTIONS (1)
  - Hyponatraemia [Recovered/Resolved]
